FAERS Safety Report 4723556-8 (Version None)
Quarter: 2005Q3

REPORT INFORMATION
  Report Type: 
  Country: None (occurrence: None)
  Receive Date: 20050725
  Receipt Date: 20050706
  Transmission Date: 20060218
  Serious: Yes (Other)
  Sender: FDA-Public Use
  Company Number: 200516192GDDC

PATIENT
  Sex: Female

DRUGS (3)
  1. LANTUS [Suspect]
     Indication: DIABETES MELLITUS INSULIN-DEPENDENT
     Route: 030
  2. OPTIPEN (INSULIN PUMP) [Suspect]
  3. FAST ACTING INSULIN [Concomitant]

REACTIONS (3)
  - BLOOD GLUCOSE INCREASED [None]
  - KETOACIDOSIS [None]
  - PHARMACEUTICAL PRODUCT COMPLAINT [None]
